FAERS Safety Report 14266351 (Version 1)
Quarter: 2017Q4

REPORT INFORMATION
  Report Type: Spontaneous
  Country: US (occurrence: None)
  Receive Date: 20171208
  Receipt Date: 20171208
  Transmission Date: 20180321
  Serious: Yes (Hospitalization)
  Sender: FDA-Public Use
  Company Number: None

PATIENT
  Age: 54 Year
  Sex: Female
  Weight: 52.3 kg

DRUGS (1)
  1. CARBOPLATIN. [Suspect]
     Active Substance: CARBOPLATIN
     Dosage: DATES OF USE - 7/21, 8/11, 9/1, 9/22, 11/29, 12/8/17
     Route: 042

REACTIONS (2)
  - Injection site papule [None]
  - Injection site erythema [None]

NARRATIVE: CASE EVENT DATE: 20171129
